FAERS Safety Report 5787536-6 (Version None)
Quarter: 2008Q2

REPORT INFORMATION
  Report Type: 
  Country: None (occurrence: None)
  Receive Date: 20080625
  Receipt Date: 20080619
  Transmission Date: 20081010
  Serious: Yes (Hospitalization, Other)
  Sender: FDA-Public Use
  Company Number: US-ROCHE-558703

PATIENT
  Sex: Male

DRUGS (6)
  1. PEG-INTERFERON A-2A (RO 25-8310) [Suspect]
     Indication: HEPATITIS C
     Dosage: STOPPED FOR TWO WEEKS
     Route: 065
     Dates: start: 20071015, end: 20080428
  2. PEG-INTERFERON A-2A (RO 25-8310) [Suspect]
     Route: 065
     Dates: start: 20080515
  3. RIBAVIRIN [Suspect]
     Indication: HEPATITIS C
     Dosage: STOPPED FOR TWO WEEKS
     Route: 065
     Dates: start: 20071015, end: 20080428
  4. RIBAVIRIN [Suspect]
     Route: 065
     Dates: start: 20080515
  5. PERCOCET [Concomitant]
     Indication: PAIN
     Dosage: FREQUENCY: EVERY SIX HOURS.
  6. PERCOCET [Concomitant]
     Dosage: FREQUENCY: EVERY SIX HOURS.

REACTIONS (5)
  - CHOLECYSTECTOMY [None]
  - DIABETES MELLITUS [None]
  - DIABETIC VASCULAR DISORDER [None]
  - HAEMATEMESIS [None]
  - SUICIDAL IDEATION [None]
